FAERS Safety Report 9223334 (Version 3)
Quarter: 2013Q2

REPORT INFORMATION
  Report Type: Report from Study
  Country: JP (occurrence: JP)
  Receive Date: 20130410
  Receipt Date: 20130508
  Transmission Date: 20140414
  Serious: Yes (Hospitalization)
  Sender: FDA-Public Use
  Company Number: JP-PFIZER INC-2013107331

PATIENT
  Age: 78 Year
  Sex: Female

DRUGS (13)
  1. IRINOTECAN HCL [Suspect]
     Indication: COLON CANCER
     Dosage: 278 MG/M2, UNK
     Route: 042
     Dates: start: 20130220
  2. IRINOTECAN HCL [Suspect]
     Dosage: 231 MG, UNK
     Route: 042
     Dates: start: 20130312
  3. FLUOROURACIL [Suspect]
     Indication: COLON CANCER
     Dosage: 308 MG/M2, UNK
     Route: 040
     Dates: start: 20130220
  4. FLUOROURACIL [Suspect]
     Dosage: 3080 MG/M2, UNK, CONTINUOUS INFUSION
     Route: 041
     Dates: start: 20130220
  5. FLUOROURACIL [Suspect]
     Dosage: 2464 MG, CONTINUOUS INFUSION
     Route: 041
     Dates: start: 20130312
  6. FOLINIC ACID [Suspect]
     Indication: COLON CANCER
     Dosage: 616 MG/M2, UNK
     Route: 042
     Dates: start: 20130220
  7. BLINDED THERAPY [Suspect]
     Indication: COLON CANCER
     Dosage: UNK
     Route: 042
     Dates: start: 20130220
  8. AMLODIPINE [Concomitant]
     Dosage: UNK
     Dates: start: 20120404
  9. GOSHAJINKIGAN [Concomitant]
     Dosage: POWDER, UNK
     Dates: start: 20110805
  10. OLMETEC [Concomitant]
     Dosage: UNK
     Dates: start: 20130206
  11. BIOFERMIN [Concomitant]
     Dosage: UNK
     Route: 048
  12. FERRO-GRADUMET [Concomitant]
     Dosage: UNK
     Dates: start: 20110502
  13. HACHIAZULE [Concomitant]
     Dosage: UNK
     Dates: start: 20130306

REACTIONS (1)
  - Herpes zoster [Recovered/Resolved]
